FAERS Safety Report 9054162 (Version 3)
Quarter: 2013Q1

REPORT INFORMATION
  Report Type: Spontaneous
  Country: CA (occurrence: CA)
  Receive Date: 20130208
  Receipt Date: 20130222
  Transmission Date: 20140127
  Serious: Yes (Hospitalization)
  Sender: FDA-Public Use
  Company Number: CA-BAYER-2013-015482

PATIENT
  Sex: Female

DRUGS (1)
  1. GADOVIST [Suspect]
     Dosage: UNK
     Dates: start: 20130204

REACTIONS (2)
  - Pulmonary oedema [None]
  - Acute respiratory distress syndrome [None]
